FAERS Safety Report 5243420-8 (Version None)
Quarter: 2007Q1

REPORT INFORMATION
  Report Type: 
  Country: None (occurrence: None)
  Receive Date: 20070215
  Receipt Date: 20070131
  Transmission Date: 20070707
  Serious: Yes (Other)
  Sender: FDA-Public Use
  Company Number: 2006EU003262

PATIENT
  Age: 31 Year
  Sex: Female
  Weight: 55 kg

DRUGS (3)
  1. PROTOPIC [Suspect]
     Indication: DERMATITIS ATOPIC
     Dosage: 0.1%, BID, TOPICAL
     Route: 061
     Dates: start: 20040207, end: 20040525
  2. PROTOPIC [Suspect]
     Indication: DERMATITIS ATOPIC
     Dosage: 0.1%, BID, TOPICAL
     Route: 061
     Dates: start: 20051205, end: 20060630
  3. PROTOPIC [Suspect]
     Indication: DERMATITIS ATOPIC
     Dosage: 0.1%, BID, TOPICAL
     Route: 061
     Dates: start: 20060906, end: 20061023

REACTIONS (4)
  - IMMUNOSUPPRESSION [None]
  - LYMPHADENOPATHY MEDIASTINAL [None]
  - PULMONARY SARCOIDOSIS [None]
  - SILICON GRANULOMA [None]
